FAERS Safety Report 11912052 (Version 2)
Quarter: 2016Q1

REPORT INFORMATION
  Report Type: Other
  Country: GB (occurrence: US)
  Receive Date: 20160112
  Receipt Date: 20160129
  Transmission Date: 20160526
  Serious: Yes (Disabling, Other)
  Sender: FDA-Public Use
  Company Number: GB-CLARIS PHARMASERVICES-1046436

PATIENT
  Age: 46 Year
  Sex: Male

DRUGS (3)
  1. LEVOFLOXACIN. [Suspect]
     Active Substance: LEVOFLOXACIN
     Route: 065
  2. CETIRIZINE [Concomitant]
     Active Substance: CETIRIZINE HYDROCHLORIDE
  3. LANSOPRAZOLE. [Concomitant]
     Active Substance: LANSOPRAZOLE

REACTIONS (11)
  - Myalgia [Unknown]
  - Visual impairment [Unknown]
  - Neuropathy peripheral [Unknown]
  - Muscle atrophy [Unknown]
  - Fatigue [Unknown]
  - Tendon disorder [Unknown]
  - Tachycardia [Unknown]
  - Fibromyalgia [Unknown]
  - Gastrointestinal disorder [Unknown]
  - Muscular weakness [Unknown]
  - Mood altered [Unknown]
